FAERS Safety Report 6265377-3 (Version None)
Quarter: 2009Q3

REPORT INFORMATION
  Report Type: 
  Country: None (occurrence: None)
  Receive Date: 20090713
  Receipt Date: 20090708
  Transmission Date: 20100115
  Serious: Yes (Life-Threatening)
  Sender: FDA-Public Use
  Company Number: FR-ASTRAZENECA-2009SE04326

PATIENT
  Age: 23550 Day
  Sex: Male

DRUGS (5)
  1. DIPRIVAN [Suspect]
     Indication: ANAESTHESIA
     Route: 042
     Dates: start: 20080911, end: 20080911
  2. SUFENTA PRESERVATIVE FREE [Suspect]
     Indication: ANAESTHESIA
     Route: 042
     Dates: start: 20080911, end: 20080911
  3. ETOMIDATE LIPURO [Suspect]
     Indication: ANAESTHESIA
     Route: 042
     Dates: start: 20080911, end: 20080911
  4. NIMBEX [Suspect]
     Indication: ANAESTHESIA
     Route: 042
     Dates: start: 20080911, end: 20080911
  5. ZINNAT [Suspect]
     Indication: ANAESTHESIA
     Route: 042
     Dates: start: 20080911, end: 20080911

REACTIONS (1)
  - ANAPHYLACTIC SHOCK [None]
